FAERS Safety Report 7507533-X (Version None)
Quarter: 2011Q2

REPORT INFORMATION
  Report Type: 
  Country: None (occurrence: None)
  Receive Date: 20110526
  Receipt Date: 20110411
  Transmission Date: 20111010
  Serious: No
  Sender: FDA-Public Use
  Company Number: US-MYLANLABS-2011S1006239

PATIENT
  Age: 80 Year
  Sex: Female

DRUGS (2)
  1. CENTRUM [Concomitant]
  2. ZOLPIDEM TARTRATE [Suspect]
     Indication: INSOMNIA
     Route: 048
     Dates: start: 20110218, end: 20110219

REACTIONS (3)
  - INSOMNIA [None]
  - DIZZINESS [None]
  - DRUG INEFFECTIVE [None]
